FAERS Safety Report 8540840-0 (Version None)
Quarter: 2012Q2

REPORT INFORMATION
  Report Type: 
  Country: None (occurrence: None)
  Receive Date: 20120412
  Receipt Date: 20090107
  Transmission Date: 20120825
  Serious: Yes (Disabling, Other)
  Sender: FDA-Public Use
  Company Number: PHEH2009US00619

PATIENT
  Sex: Female

DRUGS (8)
  1. PROCRIT [Concomitant]
  2. ATENOLOL [Concomitant]
  3. COUMADIN [Concomitant]
  4. DECADRON [Concomitant]
  5. CALCITRIOL [Concomitant]
  6. THALIDOMIDE [Concomitant]
  7. AREDIA [Suspect]
     Indication: MULTIPLE MYELOMA
     Dosage: 90 MG, QMO, INTRAVENOUS
     Route: 042
     Dates: start: 20040101, end: 20051201
  8. NORVASC [Concomitant]

REACTIONS (5)
  - BONE PAIN [None]
  - ORAL CAVITY FISTULA [None]
  - FISTULA DISCHARGE [None]
  - BONE DISORDER [None]
  - GINGIVITIS [None]
